FAERS Safety Report 5381488-9 (Version None)
Quarter: 2007Q3

REPORT INFORMATION
  Report Type: 
  Country: None (occurrence: None)
  Receive Date: 20070705
  Receipt Date: 20070705
  Transmission Date: 20080115
  Serious: Yes (Life-Threatening, Hospitalization, Other)
  Sender: FDA-Public Use
  Company Number: None

PATIENT
  Sex: Male
  Weight: 26 kg

DRUGS (2)
  1. REMODULIN [Suspect]
     Dosage: 65MG/KG 1 MIN CONTINUOUS IV
     Route: 042
     Dates: start: 20050802
  2. CRONO-5 PUMP [Concomitant]

REACTIONS (9)
  - BACTERIAL INFECTION [None]
  - BLOOD CULTURE POSITIVE [None]
  - COUGH [None]
  - ENDOCARDITIS [None]
  - FULL BLOOD COUNT ABNORMAL [None]
  - NEPHRITIS [None]
  - RED BLOOD CELL SEDIMENTATION RATE INCREASED [None]
  - SEPTIC EMBOLUS [None]
  - STENOTROPHOMONAS INFECTION [None]
